FAERS Safety Report 19762445 (Version 2)
Quarter: 2021Q3

REPORT INFORMATION
  Report Type: Spontaneous
  Country: JP (occurrence: JP)
  Receive Date: 20210830
  Receipt Date: 20210908
  Transmission Date: 20211014
  Serious: Yes (Death, Other)
  Sender: FDA-Public Use
  Company Number: JP-BAUSCH-BL-2021-029483

PATIENT
  Age: 7 Decade
  Sex: Male

DRUGS (1)
  1. LUMICEF [Suspect]
     Active Substance: BRODALUMAB
     Indication: PSORIASIS
     Route: 058
     Dates: start: 202105, end: 202107

REACTIONS (3)
  - Sepsis [Fatal]
  - Cardiac failure [Fatal]
  - Cholangitis acute [Fatal]

NARRATIVE: CASE EVENT DATE: 202107
